FAERS Safety Report 16149984 (Version 1)
Quarter: 2019Q2

REPORT INFORMATION
  Report Type: Spontaneous
  Country: US (occurrence: US)
  Receive Date: 20190402
  Receipt Date: 20190402
  Transmission Date: 20190711
  Serious: Yes (Congenital Anomaly, Other)
  Sender: FDA-Public Use
  Company Number: None

PATIENT
  Age: 77 Year
  Sex: Male
  Weight: 90 kg

DRUGS (5)
  1. ALLOPURINOL. [Concomitant]
     Active Substance: ALLOPURINOL
     Dates: start: 20190101
  2. CARBAMAZEPINE. [Suspect]
     Active Substance: CARBAMAZEPINE
     Indication: NEUROPATHY PERIPHERAL
     Route: 048
     Dates: start: 20150701, end: 20190402
  3. LISINOPRIL. [Concomitant]
     Active Substance: LISINOPRIL
     Dates: start: 20190101
  4. ATORVASTATIN [Concomitant]
     Active Substance: ATORVASTATIN
     Dates: start: 20190101
  5. HYDROCHLOROTHIAZIDE. [Concomitant]
     Active Substance: HYDROCHLOROTHIAZIDE
     Dates: start: 20190101

REACTIONS (6)
  - Decreased appetite [None]
  - Coordination abnormal [None]
  - Product substitution issue [None]
  - Stupor [None]
  - Dizziness [None]
  - Nausea [None]

NARRATIVE: CASE EVENT DATE: 20190402
